FAERS Safety Report 5817680-6 (Version None)
Quarter: 2008Q3

REPORT INFORMATION
  Report Type: 
  Country: None (occurrence: None)
  Receive Date: 20080722
  Receipt Date: 20080711
  Transmission Date: 20090109
  Serious: Yes (Death, Hospitalization)
  Sender: FDA-Public Use
  Company Number: MY-ELI_LILLY_AND_COMPANY-MY200807002565

PATIENT
  Age: 47 Year
  Sex: Male

DRUGS (2)
  1. CYMBALTA [Suspect]
     Indication: DEPRESSION
     Dosage: 60 MG, AT NIGHT
     Route: 048
     Dates: start: 20080403, end: 20080509
  2. ZYPREXA [Suspect]
     Indication: DEPRESSION
     Dosage: 5 MG, AT NIGHT
     Route: 048
     Dates: start: 20080403, end: 20080509

REACTIONS (3)
  - ASPHYXIA [None]
  - COMPLETED SUICIDE [None]
  - SUICIDE ATTEMPT [None]
